FAERS Safety Report 12771045 (Version 1)
Quarter: 2016Q3

REPORT INFORMATION
  Report Type: Spontaneous
  Country: US (occurrence: US)
  Receive Date: 20160922
  Receipt Date: 20160922
  Transmission Date: 20161109
  Serious: No
  Sender: FDA-Public Use
  Company Number: US-009507513-1609USA003481

PATIENT
  Age: 42 Year
  Sex: Female

DRUGS (6)
  1. BELSOMRA [Suspect]
     Active Substance: SUVOREXANT
     Indication: INSOMNIA
     Dosage: 20 MG, QPM(20 MG./ONCE NIGHTLY)
     Route: 048
     Dates: start: 20160712
  2. XANAX [Concomitant]
     Active Substance: ALPRAZOLAM
  3. TOPAMAX [Concomitant]
     Active Substance: TOPIRAMATE
  4. WELLBUTRIN [Concomitant]
     Active Substance: BUPROPION HYDROCHLORIDE
  5. MOBIC [Concomitant]
     Active Substance: MELOXICAM
  6. IBUPROFEN (+) ACETAMINOPHEN [Concomitant]

REACTIONS (3)
  - Arthralgia [Recovered/Resolved]
  - Therapeutic response unexpected [Unknown]
  - Drug ineffective [Not Recovered/Not Resolved]

NARRATIVE: CASE EVENT DATE: 2016
